FAERS Safety Report 25510695 (Version 1)
Quarter: 2025Q3

REPORT INFORMATION
  Report Type: Other
  Country: EU (occurrence: EU)
  Receive Date: 20250703
  Receipt Date: 20250703
  Transmission Date: 20251021
  Serious: Yes (Hospitalization, Other)
  Sender: RENATA LIMITED
  Company Number: EU-Renata Limited-2179866

PATIENT
  Age: 75 Year
  Sex: Female

DRUGS (14)
  1. METOPROLOL TARTRATE [Suspect]
     Active Substance: METOPROLOL TARTRATE
     Indication: Ventricular extrasystoles
  2. METOPROLOL TARTRATE [Suspect]
     Active Substance: METOPROLOL TARTRATE
     Indication: Ventricular tachycardia
  3. OXYGEN [Concomitant]
     Active Substance: OXYGEN
  4. RIVAROXABAN [Concomitant]
     Active Substance: RIVAROXABAN
  5. NITROGLYCERIN [Concomitant]
     Active Substance: NITROGLYCERIN
  6. TICAGRELOR [Concomitant]
     Active Substance: TICAGRELOR
  7. EPINEPHRINE [Concomitant]
     Active Substance: EPINEPHRINE
  8. LEVETIRACETAM [Concomitant]
     Active Substance: LEVETIRACETAM
  9. RAMIPRIL [Concomitant]
     Active Substance: RAMIPRIL
  10. ATORVASTATIN CALCIUM [Concomitant]
     Active Substance: ATORVASTATIN CALCIUM
  11. ASPIRIN [Concomitant]
     Active Substance: ASPIRIN
  12. SALINE [Concomitant]
     Active Substance: SODIUM CHLORIDE
  13. CHLORPHENIRAMINE MALEATE [Concomitant]
     Active Substance: CHLORPHENIRAMINE MALEATE
  14. HYDROCORTISONE ACETATE [Concomitant]
     Active Substance: HYDROCORTISONE ACETATE

REACTIONS (2)
  - Arteriospasm coronary [Recovered/Resolved]
  - Product use in unapproved indication [Unknown]
